FAERS Safety Report 6687602-7 (Version None)
Quarter: 2010Q2

REPORT INFORMATION
  Report Type: 
  Country: None (occurrence: None)
  Receive Date: 20100419
  Receipt Date: 20100406
  Transmission Date: 20101027
  Serious: Yes (Hospitalization, Other)
  Sender: FDA-Public Use
  Company Number: JP-AMGEN-QUU406373

PATIENT
  Age: 56 Year
  Sex: Male

DRUGS (1)
  1. CINACALCET HYDROCHLORIDE [Suspect]
     Indication: DRUG USE FOR UNKNOWN INDICATION
     Route: 048

REACTIONS (5)
  - ABDOMINAL PAIN LOWER [None]
  - ANAEMIA [None]
  - EOSINOPHIL COUNT INCREASED [None]
  - KIDNEY ENLARGEMENT [None]
  - RENAL HAEMORRHAGE [None]
